FAERS Safety Report 21665781 (Version 7)
Quarter: 2024Q3

REPORT INFORMATION
  Report Type: Spontaneous
  Country: BR (occurrence: BR)
  Receive Date: 20221201
  Receipt Date: 20240813
  Transmission Date: 20241016
  Serious: Yes (Hospitalization, Other)
  Sender: CELLTRION
  Company Number: BR-CELLTRION INC.-2022BR020155

PATIENT

DRUGS (26)
  1. INFLIXIMAB [Suspect]
     Active Substance: INFLIXIMAB
     Indication: Rheumatoid arthritis
     Dosage: UNK
     Route: 042
     Dates: start: 20220922
  2. INFLIXIMAB [Suspect]
     Active Substance: INFLIXIMAB
     Indication: Polychondritis
     Dosage: 2 AND A HALF AMPOULES EVERY 8 WEEKS
     Route: 042
     Dates: start: 20230505
  3. INFLIXIMAB [Suspect]
     Active Substance: INFLIXIMAB
     Dosage: 3  AMPOULES EVERY 8 WEEKS
     Route: 042
  4. METHOTREXATE [Concomitant]
     Active Substance: METHOTREXATE
     Indication: Arthritis
     Dosage: 7 TABLETS ONCE A WEEK
     Route: 048
  5. METHOTREXATE [Concomitant]
     Active Substance: METHOTREXATE
     Indication: Polychondritis
  6. TYLEX [CODEINE PHOSPHATE;PARACETAMOL] [Concomitant]
     Indication: Pain
     Dosage: 1 TABLET
     Route: 048
  7. TRAMADOL [Concomitant]
     Active Substance: TRAMADOL\TRAMADOL HYDROCHLORIDE
     Indication: Pain
     Dosage: 1 TABLET
     Route: 048
  8. MORPHINE [Concomitant]
     Active Substance: MORPHINE
     Indication: Pain
     Dosage: 1 TABLET
     Route: 048
  9. MORPHINE [Concomitant]
     Active Substance: MORPHINE
     Dosage: UNK
     Route: 065
  10. .ALPHA.-TOCOPHEROL [Concomitant]
     Active Substance: .ALPHA.-TOCOPHEROL
     Indication: Vitamin supplementation
     Route: 048
  11. FOLIC ACID [Concomitant]
     Active Substance: FOLIC ACID
     Indication: Vitamin supplementation
     Dosage: UNK
     Route: 048
  12. FOLIC ACID [Concomitant]
     Active Substance: FOLIC ACID
     Indication: Polychondritis
     Dosage: 11 PILL A WEEK (START DATE: 3 YEARS)
     Route: 048
  13. FISH OIL [Concomitant]
     Active Substance: FISH OIL
     Indication: Vitamin supplementation
     Route: 048
  14. VITAMIN D NOS [Concomitant]
     Active Substance: CHOLECALCIFEROL\ERGOCALCIFEROL
     Indication: Vitamin supplementation
     Route: 048
  15. METHOTREXATE [Concomitant]
     Active Substance: METHOTREXATE
     Indication: Polychondritis
     Dosage: 2.5 MG, 7 PILLS A WEEK (START DATE: 3 YEARS AGO)
     Route: 048
  16. METHOTREXATE [Concomitant]
     Active Substance: METHOTREXATE
     Dosage: UNK
     Route: 065
  17. AZATHIOPRINE [Concomitant]
     Active Substance: AZATHIOPRINE
     Indication: Polychondritis
     Dosage: 1 PILL A DAY
     Route: 048
  18. AZATHIOPRINE [Concomitant]
     Active Substance: AZATHIOPRINE
     Dosage: UNK
     Route: 065
  19. DEFLAZACORT [Concomitant]
     Active Substance: DEFLAZACORT
     Indication: Diabetes mellitus
     Dosage: 1 PILL A DAY
     Route: 048
  20. DEFLAZACORT [Concomitant]
     Active Substance: DEFLAZACORT
     Indication: Arthritis
     Dosage: UNK
     Route: 065
  21. DEFLAZACORT [Concomitant]
     Active Substance: DEFLAZACORT
     Indication: Polychondritis
  22. INSULIN BEEF [Concomitant]
     Active Substance: INSULIN BEEF
     Indication: Type 2 diabetes mellitus
     Dosage: 30 IU IN THE MORNING (START DATE: 6 YEARS)
     Route: 058
  23. INSULIN BEEF [Concomitant]
     Active Substance: INSULIN BEEF
     Dosage: 15 IU AT NIGHT (START DATE: 6 YEARS)
     Route: 058
  24. ACETAMINOPHEN\CODEINE PHOSPHATE [Concomitant]
     Active Substance: ACETAMINOPHEN\CODEINE PHOSPHATE
     Indication: Fibromyalgia
     Dosage: UNK
     Route: 048
  25. ZOLPIDEM [Concomitant]
     Active Substance: ZOLPIDEM TARTRATE
     Indication: Sleep disorder
     Dosage: UNK
     Route: 048
  26. DULOXETINE [Concomitant]
     Active Substance: DULOXETINE
     Indication: Fibromyalgia
     Dosage: UNK

REACTIONS (12)
  - Polymenorrhagia [Unknown]
  - Blood urine present [Unknown]
  - COVID-19 [Unknown]
  - Haemorrhage [Recovered/Resolved]
  - Arrhythmia [Unknown]
  - Decreased immune responsiveness [Recovering/Resolving]
  - Headache [Unknown]
  - Nausea [Unknown]
  - Pyrexia [Recovered/Resolved]
  - Influenza [Recovering/Resolving]
  - Intentional dose omission [Unknown]
  - Intentional product use issue [Unknown]

NARRATIVE: CASE EVENT DATE: 20230506
